FAERS Safety Report 5014047-8 (Version None)
Quarter: 2006Q2

REPORT INFORMATION
  Report Type: 
  Country: None (occurrence: None)
  Receive Date: 20060414
  Receipt Date: 20060201
  Transmission Date: 20061013
  Serious: No
  Sender: FDA-Public Use
  Company Number: 2006SP000568

PATIENT
  Age: 62 Year
  Sex: Female
  Weight: 81.6475 kg

DRUGS (8)
  1. LUNESTA [Suspect]
     Indication: INSOMNIA
     Dosage: 3 MG;ORAL
     Route: 048
     Dates: start: 20060101
  2. TIAZAC [Concomitant]
  3. COZAAR [Concomitant]
  4. VITAMIN B COMPLEX CAP [Concomitant]
  5. ESTROGENS [Concomitant]
  6. OMEPRAZOLE [Concomitant]
  7. LASIX [Concomitant]
  8. MAGNESIUM [Concomitant]

REACTIONS (1)
  - DYSGEUSIA [None]
